FAERS Safety Report 24582686 (Version 1)
Quarter: 2024Q4

REPORT INFORMATION
  Report Type: Report from Study
  Country: US (occurrence: US)
  Receive Date: 20241106
  Receipt Date: 20241106
  Transmission Date: 20250115
  Serious: Yes (Hospitalization, Other)
  Sender: ABBVIE
  Company Number: US-ABBVIE-5986231

PATIENT
  Age: 75 Year
  Sex: Male

DRUGS (1)
  1. CREON [Suspect]
     Active Substance: PANCRELIPASE AMYLASE\PANCRELIPASE LIPASE\PANCRELIPASE PROTEASE
     Indication: Pancreatic failure
     Dosage: DOSE: 36000 TROCHE?FREQUENCY: 5, FREQUENCY TIME: 3, FREQUENCY UNITS: DAYS
     Route: 048
     Dates: start: 2008, end: 20241029

REACTIONS (4)
  - Cardiac failure chronic [Not Recovered/Not Resolved]
  - Cardiac arrest [Unknown]
  - Hypotension [Unknown]
  - Sepsis [Unknown]

NARRATIVE: CASE EVENT DATE: 20240101
